FAERS Safety Report 5547379-5 (Version None)
Quarter: 2007Q4

REPORT INFORMATION
  Report Type: 
  Country: None (occurrence: None)
  Receive Date: 20071211
  Receipt Date: 20071126
  Transmission Date: 20080405
  Serious: Yes (Other)
  Sender: FDA-Public Use
  Company Number: JP-PFIZER INC-2007102960

PATIENT
  Sex: Female

DRUGS (1)
  1. DOSTINEX [Suspect]
     Indication: SUPPRESSED LACTATION
     Dosage: DAILY DOSE:1MG
     Route: 048
     Dates: start: 20071122, end: 20071122

REACTIONS (2)
  - DRUG EFFECT DECREASED [None]
  - MASTITIS [None]
